FAERS Safety Report 9287090 (Version 3)
Quarter: 2014Q2

REPORT INFORMATION
  Report Type: Spontaneous
  Country: US (occurrence: US)
  Receive Date: 20130513
  Receipt Date: 20140429
  Transmission Date: 20141212
  Serious: Yes (Hospitalization)
  Sender: FDA-Public Use
  Company Number: US-B.I. PHARMACEUTICALS,INC./RIDGEFIELD-2013-BI-13262BP

PATIENT
  Age: 82 Year
  Sex: Female
  Weight: 62.6 kg

DRUGS (11)
  1. PRADAXA [Suspect]
     Indication: ANTICOAGULANT THERAPY
     Route: 065
     Dates: start: 20110212, end: 20120315
  2. PRADAXA [Suspect]
     Indication: ATRIAL FIBRILLATION
  3. SYNTHROID [Concomitant]
     Dosage: 150 MCG
     Route: 048
     Dates: start: 20120110
  4. FOLIC ACID [Concomitant]
     Route: 065
  5. TOPROL XL [Concomitant]
     Dosage: 100 MG
     Route: 048
     Dates: start: 20110203
  6. CITALOPRAM [Concomitant]
     Route: 048
     Dates: start: 20110203, end: 20120502
  7. CARDIZEM CD [Concomitant]
     Dosage: 300 MG
     Route: 048
     Dates: start: 20120110, end: 20120502
  8. LASIX [Concomitant]
     Route: 048
     Dates: start: 20120206, end: 20120502
  9. BENICAR [Concomitant]
     Dosage: 40 MG
     Route: 048
     Dates: start: 20110203, end: 20120502
  10. POTASSIUM CHLORIDE ER [Concomitant]
     Dosage: 8 MEQ
     Route: 048
     Dates: start: 20110203, end: 20120502
  11. RYTHMOL SR [Concomitant]
     Dosage: 450 MG
     Route: 048
     Dates: start: 20120206, end: 20120502

REACTIONS (2)
  - Gastrointestinal haemorrhage [Unknown]
  - Anaemia [Unknown]
